FAERS Safety Report 4901923-7 (Version None)
Quarter: 2006Q1

REPORT INFORMATION
  Report Type: 
  Country: None (occurrence: None)
  Receive Date: 20060203
  Receipt Date: 20060203
  Transmission Date: 20060701
  Serious: Yes (Hospitalization)
  Sender: FDA-Public Use
  Company Number: None

PATIENT
  Age: 57 Year
  Sex: Female
  Weight: 58.9676 kg

DRUGS (1)
  1. PPD-PARKEDALE PHARMACEUTICALS-ROCHESTER, MI 48307(APISOL BRAND) [Suspect]
     Indication: TUBERCULIN TEST
     Dosage: .1 ML ONCE SUBCUTANEO
     Route: 058
     Dates: start: 20060117

REACTIONS (3)
  - CHEST PAIN [None]
  - PHARYNGEAL OEDEMA [None]
  - RASH GENERALISED [None]
